FAERS Safety Report 12168675 (Version 2)
Quarter: 2016Q1

REPORT INFORMATION
  Report Type: Report from Study
  Country: JP (occurrence: JP)
  Receive Date: 20160310
  Receipt Date: 20160311
  Transmission Date: 20160526
  Serious: Yes (Hospitalization, Other)
  Sender: FDA-Public Use
  Company Number: JP-JNJFOC-20150411082

PATIENT
  Age: 55 Year
  Sex: Male
  Weight: 71 kg

DRUGS (38)
  1. SESDEN [Concomitant]
     Active Substance: TIMEPIDIUM BROMIDE
     Indication: ENDOSCOPY
     Route: 030
     Dates: start: 20141010, end: 20141010
  2. KINDAVATE [Concomitant]
     Route: 061
     Dates: start: 20140920
  3. RINDERON V [Concomitant]
     Active Substance: BETAMETHASONE VALERATE
     Route: 001
     Dates: start: 20150317, end: 20150331
  4. XYLOCAINE [Concomitant]
     Active Substance: LIDOCAINE HYDROCHLORIDE
     Indication: ENDOSCOPY
     Route: 061
     Dates: start: 20141010, end: 20141010
  5. GOLIMUMAB [Suspect]
     Active Substance: GOLIMUMAB
     Indication: COLITIS ULCERATIVE
     Route: 058
     Dates: start: 20140222
  6. SESDEN [Concomitant]
     Active Substance: TIMEPIDIUM BROMIDE
     Indication: ENDOSCOPY
     Route: 030
     Dates: start: 20140131, end: 20140131
  7. RINDERON VG [Concomitant]
     Active Substance: BETAMETHASONE VALERATE\GENTAMICIN SULFATE
     Route: 061
     Dates: start: 20150317, end: 20150331
  8. ALLELOCK [Concomitant]
     Active Substance: OLOPATADINE HYDROCHLORIDE
     Indication: RHINITIS ALLERGIC
     Route: 048
     Dates: start: 20140222, end: 20140511
  9. ALLELOCK [Concomitant]
     Active Substance: OLOPATADINE HYDROCHLORIDE
     Indication: SEASONAL ALLERGY
     Route: 048
     Dates: start: 20140222, end: 20140511
  10. XYLOCAINE [Concomitant]
     Active Substance: LIDOCAINE HYDROCHLORIDE
     Indication: ENDOSCOPY
     Route: 061
     Dates: start: 20140131, end: 20140131
  11. XYLOCAINE [Concomitant]
     Active Substance: LIDOCAINE HYDROCHLORIDE
     Indication: ENDOSCOPY
     Route: 061
     Dates: start: 20150403, end: 20150403
  12. BIO-THREE [Concomitant]
     Active Substance: HERBALS
     Indication: COLITIS ULCERATIVE
     Route: 048
     Dates: start: 20130624
  13. SESDEN [Concomitant]
     Active Substance: TIMEPIDIUM BROMIDE
     Indication: ENDOSCOPY
     Route: 030
     Dates: start: 20140317, end: 20140317
  14. KINDAVATE [Concomitant]
     Route: 061
     Dates: start: 20140510, end: 20140620
  15. MAGCOROL P [Concomitant]
     Indication: ENDOSCOPY
     Route: 048
     Dates: start: 20140131, end: 20140131
  16. MAGCOROL P [Concomitant]
     Indication: ENDOSCOPY
     Route: 048
     Dates: start: 20141010, end: 20141010
  17. GOLIMUMAB [Suspect]
     Active Substance: GOLIMUMAB
     Indication: COLITIS ULCERATIVE
     Route: 058
     Dates: start: 20140208, end: 20140208
  18. ASACOL [Concomitant]
     Active Substance: MESALAMINE
     Indication: COLITIS ULCERATIVE
     Route: 048
     Dates: end: 20150403
  19. MAGCOROL P [Concomitant]
     Indication: ENDOSCOPY
     Route: 048
     Dates: start: 20140317, end: 20140317
  20. ASACOL [Concomitant]
     Active Substance: MESALAMINE
     Indication: COLITIS ULCERATIVE
     Route: 048
     Dates: start: 20150403
  21. TARIVID [Concomitant]
     Active Substance: OFLOXACIN
     Route: 001
     Dates: start: 20150317, end: 20150331
  22. SODIUM PICOSULFATE [Concomitant]
     Active Substance: SODIUM PICOSULFATE
     Indication: ENDOSCOPY
     Route: 048
     Dates: start: 20141009, end: 20141009
  23. SODIUM PICOSULFATE [Concomitant]
     Active Substance: SODIUM PICOSULFATE
     Indication: ENDOSCOPY
     Route: 048
     Dates: start: 20150402, end: 20150402
  24. ALLELOCK [Concomitant]
     Active Substance: OLOPATADINE HYDROCHLORIDE
     Indication: SEASONAL ALLERGY
     Route: 048
     Dates: start: 20150308
  25. XYLOCAINE [Concomitant]
     Active Substance: LIDOCAINE HYDROCHLORIDE
     Indication: ENDOSCOPY
     Route: 061
     Dates: start: 20140317, end: 20140317
  26. XYLOCAINE [Concomitant]
     Active Substance: LIDOCAINE HYDROCHLORIDE
     Indication: ENDOSCOPY
     Route: 061
     Dates: start: 20150515, end: 20150515
  27. PREDNISOLONE SODIUM PHOSPHATE. [Concomitant]
     Active Substance: PREDNISOLONE SODIUM PHOSPHATE
     Indication: COLITIS ULCERATIVE
     Route: 054
     Dates: start: 20150411, end: 20150424
  28. PROPECIA [Concomitant]
     Active Substance: FINASTERIDE
     Indication: ANDROGENETIC ALOPECIA
     Route: 048
     Dates: start: 20120825
  29. GOLIMUMAB [Suspect]
     Active Substance: GOLIMUMAB
     Indication: COLITIS ULCERATIVE
     Route: 058
     Dates: start: 20150314
  30. ASACOL [Concomitant]
     Active Substance: MESALAMINE
     Indication: COLITIS ULCERATIVE
     Route: 048
     Dates: start: 20150403
  31. MAGCOROL P [Concomitant]
     Indication: ENDOSCOPY
     Route: 048
     Dates: start: 20150403, end: 20150403
  32. XYLOCAINE [Concomitant]
     Active Substance: LIDOCAINE HYDROCHLORIDE
     Indication: ENDOSCOPY
     Route: 061
     Dates: start: 20140512, end: 20140512
  33. PROPETO [Concomitant]
     Route: 061
     Dates: start: 20140510, end: 20140523
  34. SESDEN [Concomitant]
     Active Substance: TIMEPIDIUM BROMIDE
     Indication: ENDOSCOPY
     Route: 030
     Dates: start: 20140512, end: 20140512
  35. SESDEN [Concomitant]
     Active Substance: TIMEPIDIUM BROMIDE
     Indication: ENDOSCOPY
     Route: 030
     Dates: start: 20150403, end: 20150403
  36. ALLELOCK [Concomitant]
     Active Substance: OLOPATADINE HYDROCHLORIDE
     Indication: RHINITIS ALLERGIC
     Route: 048
     Dates: start: 20150308
  37. MAGCOROL P [Concomitant]
     Indication: ENDOSCOPY
     Route: 048
     Dates: start: 20140512, end: 20140512
  38. PROPETO [Concomitant]
     Route: 061
     Dates: start: 20140920

REACTIONS (1)
  - Rectal adenocarcinoma [Recovered/Resolved]

NARRATIVE: CASE EVENT DATE: 20150408
